FAERS Safety Report 24362090 (Version 2)
Quarter: 2024Q4

REPORT INFORMATION
  Report Type: Spontaneous
  Country: BG (occurrence: BG)
  Receive Date: 20240925
  Receipt Date: 20241118
  Transmission Date: 20250115
  Serious: Yes (Other)
  Sender: Unknown Manufacturer
  Company Number: BG-ASTELLAS-2024-AER-004443

PATIENT

DRUGS (8)
  1. METOPROLOL SUCCINATE [Suspect]
     Active Substance: METOPROLOL SUCCINATE
     Indication: Hypertension
     Dosage: 25 MILLIGRAM, QD (HALF A TABLET A DAY ADMINISTRATED FOR THE PAST 30 YEARS)
     Route: 048
  2. FELODIPINE [Suspect]
     Active Substance: FELODIPINE
     Indication: Hypertension
     Dosage: 5 MILLIGRAM, QD
     Route: 048
  3. TOFACITINIB [Suspect]
     Active Substance: TOFACITINIB
     Indication: Rheumatoid arthritis
     Dosage: 5 MILLIGRAM, BID (TWICE DAILY FOR 13 YEARS)
     Route: 065
  4. ALLOPURINOL SODIUM [Suspect]
     Active Substance: ALLOPURINOL SODIUM
     Indication: Hyperuricaemia
     Dosage: 100 MILLIGRAM, QD FOR THE PAST 6 MONTHS
     Route: 065
  5. DIPYRIDAMOLE [Suspect]
     Active Substance: DIPYRIDAMOLE
     Indication: Polycythaemia
     Dosage: 25 MILLIGRAM, Q4H FOR PAST 22 YEARS
     Route: 065
  6. LOSARTAN [Suspect]
     Active Substance: LOSARTAN
     Indication: Hypertension
     Dosage: 50 MILLIGRAM, QD
     Route: 065
  7. HYDROCHLOROTHIAZIDE\TRIAMTERENE [Suspect]
     Active Substance: HYDROCHLOROTHIAZIDE\TRIAMTERENE
     Indication: Hypertension
     Dosage: 25 MG/12.5 MG
     Route: 065
  8. TAMSULOSIN HYDROCHLORIDE [Suspect]
     Active Substance: TAMSULOSIN HYDROCHLORIDE
     Indication: Benign prostatic hyperplasia
     Dosage: 0.4 MILLIGRAM, QD (FOR PAST 20 YEARS)
     Route: 065

REACTIONS (3)
  - Keratoacanthoma [Unknown]
  - Skin lesion [Unknown]
  - Suspected product contamination [Unknown]
